FAERS Safety Report 6437731-8 (Version None)
Quarter: 2009Q4

REPORT INFORMATION
  Report Type: 
  Country: None (occurrence: None)
  Receive Date: 20091109
  Receipt Date: 20091027
  Transmission Date: 20100525
  Serious: Yes (Disabling, Other)
  Sender: FDA-Public Use
  Company Number: 2009AL006920

PATIENT
  Age: 41 Year
  Sex: Female

DRUGS (6)
  1. MIRTAZAPINE [Suspect]
     Indication: DEPRESSION
     Dosage: 30 MG;QD
     Dates: start: 20070724
  2. RITONAVIR [Concomitant]
  3. PREZISTA [Concomitant]
  4. TMC 125 [Concomitant]
  5. TRUVADA [Concomitant]
  6. METHADONE HCL [Concomitant]

REACTIONS (3)
  - DRUG INTERACTION [None]
  - LIPOHYPERTROPHY [None]
  - WEIGHT INCREASED [None]
